FAERS Safety Report 5664362-X (Version None)
Quarter: 2008Q1

REPORT INFORMATION
  Report Type: 
  Country: None (occurrence: None)
  Receive Date: 20080314
  Receipt Date: 20080229
  Transmission Date: 20080703
  Serious: Yes (Hospitalization, Other)
  Sender: FDA-Public Use
  Company Number: US-AMGEN-KDL253662

PATIENT
  Sex: Female
  Weight: 87.5 kg

DRUGS (8)
  1. EPOGEN [Suspect]
     Indication: DIALYSIS
     Route: 042
     Dates: start: 20070905
  2. PREVACID [Concomitant]
  3. ZEMPLAR [Concomitant]
     Dates: start: 20080212
  4. PHOSLO [Concomitant]
     Route: 048
     Dates: start: 20060101
  5. PRILOSEC [Concomitant]
     Dates: start: 20060101
  6. VITAMIN B COMPLEX WITH C [Concomitant]
  7. ZEMPLAR [Concomitant]
     Dates: start: 20071210
  8. IRON [Concomitant]
     Route: 042

REACTIONS (3)
  - ABDOMINAL PAIN [None]
  - ANAEMIA [None]
  - INFLAMMATION [None]
